FAERS Safety Report 8392723-7 (Version None)
Quarter: 2012Q2

REPORT INFORMATION
  Report Type: 
  Country: None (occurrence: None)
  Receive Date: 20120529
  Receipt Date: 20120522
  Transmission Date: 20120825
  Serious: Yes (Hospitalization, Other)
  Sender: FDA-Public Use
  Company Number: CA-ELI_LILLY_AND_COMPANY-CA201205008047

PATIENT
  Sex: Female

DRUGS (9)
  1. HUMALOG [Suspect]
     Dosage: 8 U, QID
     Dates: start: 20090401
  2. ESTROGEN [Concomitant]
     Dosage: UNK
  3. HUMALOG [Suspect]
     Dosage: PRN
     Dates: start: 20090401
  4. LANTUS [Concomitant]
     Dosage: 56 U, EACH EVENING
  5. ATENOLOL [Concomitant]
     Indication: HYPERTENSION
     Dosage: UNK
  6. PROGESTERONE [Concomitant]
     Dosage: UNK
  7. HUMALOG [Suspect]
     Indication: TYPE 2 DIABETES MELLITUS
     Dosage: 8 U, QID
     Dates: start: 20090401
  8. MORPHINE [Concomitant]
     Dosage: UNK
  9. HUMALOG [Suspect]
     Dosage: PRN
     Dates: start: 20090401

REACTIONS (7)
  - BLOOD GLUCOSE FLUCTUATION [None]
  - HYPERGLYCAEMIA [None]
  - HYPOGLYCAEMIA [None]
  - BLOOD IRON DECREASED [None]
  - POSTMENOPAUSAL HAEMORRHAGE [None]
  - VISUAL ACUITY REDUCED [None]
  - DRUG INTERACTION [None]
